FAERS Safety Report 16486250 (Version 1)
Quarter: 2019Q2

REPORT INFORMATION
  Report Type: Spontaneous
  Country: US (occurrence: US)
  Receive Date: 20190517
  Receipt Date: 20190517
  Transmission Date: 20190711
  Serious: Yes (Hospitalization)
  Sender: FDA-Public Use
  Company Number: None

PATIENT
  Sex: Male

DRUGS (9)
  1. BEMETANIDE [Concomitant]
  2. TENOFOVIR [Concomitant]
     Active Substance: TENOFOVIR
  3. MAVYRET [Suspect]
     Active Substance: GLECAPREVIR\PIBRENTASVIR
     Indication: HEPATITIS C
     Route: 048
  4. TIZANIDINE. [Concomitant]
     Active Substance: TIZANIDINE
  5. ACETAMIN [Concomitant]
     Active Substance: ACETAMINOPHEN
  6. HYDROCHLOROT [Concomitant]
     Active Substance: HYDROCHLOROTHIAZIDE
  7. IBUPROFEN. [Concomitant]
     Active Substance: IBUPROFEN
  8. AMLODIPINE [Concomitant]
     Active Substance: AMLODIPINE BESYLATE
  9. MAGNESIUM [Concomitant]
     Active Substance: MAGNESIUM

REACTIONS (1)
  - Hospitalisation [None]
